FAERS Safety Report 5296461-9 (Version None)
Quarter: 2007Q2

REPORT INFORMATION
  Report Type: 
  Country: None (occurrence: None)
  Receive Date: 20070413
  Receipt Date: 20070406
  Transmission Date: 20071010
  Serious: Yes (Other)
  Sender: FDA-Public Use
  Company Number: EG-ABBOTT-07P-048-0364338-00

PATIENT
  Sex: Female

DRUGS (1)
  1. DEPAKENE [Suspect]
     Indication: BIPOLAR DISORDER
     Route: 048
     Dates: start: 20070312, end: 20070316

REACTIONS (4)
  - BLISTER [None]
  - DERMATITIS EXFOLIATIVE [None]
  - RASH [None]
  - SKIN ULCER [None]
